FAERS Safety Report 8127548-0 (Version None)
Quarter: 2011Q4

REPORT INFORMATION
  Report Type: 
  Country: None (occurrence: None)
  Receive Date: 20111227
  Receipt Date: 20110502
  Transmission Date: 20120403
  Serious: No
  Sender: FDA-Public Use
  Company Number: PHEH2011US08309

PATIENT
  Age: 59 Year
  Sex: Female

DRUGS (8)
  1. GILENYA [Suspect]
     Indication: MULTIPLE SCLEROSIS
     Dosage: 0.5 MG, DAILY, ORAL
     Route: 048
  2. TRIAZOLAM [Concomitant]
  3. ZOLOFT [Concomitant]
  4. ZOCOR [Concomitant]
  5. LORAZEPAM [Concomitant]
  6. SEROQUEL [Concomitant]
  7. CENESTIN [Concomitant]
  8. OXAZEPAM [Concomitant]

REACTIONS (4)
  - NAUSEA [None]
  - DIZZINESS [None]
  - VOMITING [None]
  - DIARRHOEA [None]
